FAERS Safety Report 9307977 (Version 1)
Quarter: 2013Q2

REPORT INFORMATION
  Report Type: Report from Study
  Country: JP (occurrence: JP)
  Receive Date: 20130524
  Receipt Date: 20130524
  Transmission Date: 20140414
  Serious: Yes (Other)
  Sender: FDA-Public Use
  Company Number: JP-ASTELLAS-2013JP004094

PATIENT
  Age: 79 Year
  Sex: Female
  Weight: 50 kg

DRUGS (8)
  1. MIRABEGRON [Suspect]
     Indication: HYPERTONIC BLADDER
     Dosage: 50 MG, UID/QD
     Route: 048
     Dates: start: 20121204, end: 20121215
  2. MIRABEGRON [Suspect]
     Dosage: 50 MG, UID/QD
     Route: 048
     Dates: start: 20121222, end: 20121229
  3. VESICARE [Concomitant]
     Indication: HYPERTONIC BLADDER
     Dosage: 10 MG, UNKNOWN/D
     Route: 048
     Dates: start: 20110208, end: 20121204
  4. MAGMITT [Concomitant]
     Indication: CONSTIPATION
     Dosage: 660 MG, UNKNOWN/D
     Route: 048
  5. URSO                               /00465701/ [Concomitant]
     Indication: CHOLELITHIASIS
     Dosage: 600 MG, UNKNOWN/D
     Route: 048
  6. HYPOCA [Concomitant]
     Indication: HYPERTENSION
     Dosage: 15 MG, UNKNOWN/D
     Route: 048
  7. BLOPRESS [Concomitant]
     Indication: HYPERTENSION
     Dosage: 4 MG, UNKNOWN/D
     Route: 048
  8. PLETAAL [Concomitant]
     Indication: CEREBRAL INFARCTION
     Dosage: 200 MG, UNKNOWN/D
     Route: 048

REACTIONS (1)
  - Pain in extremity [Recovered/Resolved]
